FAERS Safety Report 20896166 (Version 1)
Quarter: 2022Q2

REPORT INFORMATION
  Report Type: Report from Study
  Country: US (occurrence: US)
  Receive Date: 20220531
  Receipt Date: 20220531
  Transmission Date: 20220721
  Serious: Yes (Other)
  Sender: FDA-Public Use
  Company Number: US-NOVARTISTESTPH-NVSC2022US123914

PATIENT
  Sex: Female

DRUGS (1)
  1. ILARIS [Suspect]
     Active Substance: CANAKINUMAB
     Indication: Juvenile idiopathic arthritis
     Dosage: 50 MG, QMO
     Route: 058
     Dates: start: 20200420

REACTIONS (4)
  - Juvenile idiopathic arthritis [Unknown]
  - Irritability [Unknown]
  - Fatigue [Unknown]
  - Pain [Unknown]
